FAERS Safety Report 24965111 (Version 2)
Quarter: 2025Q1

REPORT INFORMATION
  Report Type: Spontaneous
  Country: JP (occurrence: JP)
  Receive Date: 20250213
  Receipt Date: 20250305
  Transmission Date: 20250409
  Serious: Yes (Other)
  Sender: BAYER HEALTHCARE PHARMACEUTICALS INC.
  Company Number: JP-BAYER-2025A008928

PATIENT
  Age: 68 Year
  Sex: Female

DRUGS (5)
  1. KERENDIA [Suspect]
     Active Substance: FINERENONE
     Indication: Type 2 diabetes mellitus
     Dosage: DAILY DOSE 10 MG
     Dates: start: 20241216, end: 20250119
  2. KERENDIA [Suspect]
     Active Substance: FINERENONE
     Indication: Chronic kidney disease
  3. AMLODIPINE [Concomitant]
     Active Substance: AMLODIPINE BESYLATE
     Indication: Hypertension
  4. METGLUCO [Concomitant]
     Active Substance: METFORMIN HYDROCHLORIDE
     Indication: Diabetes mellitus
  5. MICARDIS [Concomitant]
     Active Substance: TELMISARTAN
     Indication: Hypertension

REACTIONS (4)
  - Hepatic function abnormal [Not Recovered/Not Resolved]
  - Cholestasis [Recovering/Resolving]
  - Pruritus [Recovering/Resolving]
  - Jaundice [Recovering/Resolving]

NARRATIVE: CASE EVENT DATE: 20250101
